FAERS Safety Report 6433438-1 (Version None)
Quarter: 2009Q4

REPORT INFORMATION
  Report Type: 
  Country: None (occurrence: None)
  Receive Date: 20091106
  Receipt Date: 20091106
  Transmission Date: 20100525
  Serious: Yes (Life-Threatening, Hospitalization)
  Sender: FDA-Public Use
  Company Number: None

PATIENT
  Age: 47 Year
  Sex: Female
  Weight: 79.3795 kg

DRUGS (3)
  1. HUMIRA [Suspect]
     Indication: POLYCHONDRITIS
     Dosage: 40MG EVERY 2 WEEKS SQ
     Route: 058
     Dates: start: 20090818, end: 20090922
  2. HUMIRA [Suspect]
     Indication: PSORIASIS
     Dosage: 40MG EVERY 2 WEEKS SQ
     Route: 058
     Dates: start: 20090818, end: 20090922
  3. HUMIRA [Suspect]
     Indication: RHEUMATOID ARTHRITIS
     Dosage: 40MG EVERY 2 WEEKS SQ
     Route: 058
     Dates: start: 20090818, end: 20090922

REACTIONS (8)
  - CONFUSIONAL STATE [None]
  - DYSPNOEA [None]
  - DYSSTASIA [None]
  - FATIGUE [None]
  - HEADACHE [None]
  - SPEECH DISORDER [None]
  - SWELLING FACE [None]
  - TRANSIENT ISCHAEMIC ATTACK [None]
